FAERS Safety Report 6257876-5 (Version None)
Quarter: 2009Q3

REPORT INFORMATION
  Report Type: 
  Country: None (occurrence: None)
  Receive Date: 20090707
  Receipt Date: 20071002
  Transmission Date: 20100115
  Serious: Yes (Hospitalization, Other)
  Sender: FDA-Public Use
  Company Number: US-ASTRAZENECA-2006UW23037

PATIENT
  Age: 19294 Day
  Sex: Female
  Weight: 148.8 kg

DRUGS (50)
  1. SEROQUEL [Suspect]
     Indication: DEPRESSION
     Dosage: 25-600 MG
     Route: 048
     Dates: start: 20000101
  2. SEROQUEL [Suspect]
     Indication: ANXIETY
     Dosage: 25-600 MG
     Route: 048
     Dates: start: 20000101
  3. SEROQUEL [Suspect]
     Indication: SLEEP DISORDER
     Dosage: 25-600 MG
     Route: 048
     Dates: start: 20000101
  4. SEROQUEL [Suspect]
     Indication: SCHIZOPHRENIA
     Dosage: 25-600 MG
     Route: 048
     Dates: start: 20000101
  5. SEROQUEL [Suspect]
     Indication: BIPOLAR DISORDER
     Dosage: 25-600 MG
     Route: 048
     Dates: start: 20000101
  6. SEROQUEL [Suspect]
     Route: 048
     Dates: start: 20010101, end: 20050101
  7. SEROQUEL [Suspect]
     Route: 048
     Dates: start: 20010101, end: 20050101
  8. SEROQUEL [Suspect]
     Route: 048
     Dates: start: 20010101, end: 20050101
  9. SEROQUEL [Suspect]
     Route: 048
     Dates: start: 20010101, end: 20050101
  10. SEROQUEL [Suspect]
     Route: 048
     Dates: start: 20010101, end: 20050101
  11. ADVAIR DISKUS 100/50 [Concomitant]
     Dosage: 100/50 MCG INHALE ONE PUFF TWICE A DAY
     Dates: start: 20031203
  12. ALBUTEROL [Concomitant]
     Indication: DYSPNOEA
     Dosage: 0.5% 4 PUFFS
     Dates: start: 19990226
  13. ALBUTEROL [Concomitant]
     Indication: TRACHEAL DISORDER
     Dosage: 0.5% 4 PUFFS
     Dates: start: 19990226
  14. BENADRYL [Concomitant]
     Indication: PRURITUS
     Dates: start: 20000718
  15. BENADRYL [Concomitant]
     Indication: INSOMNIA
     Dates: start: 20000718
  16. CELEXA [Concomitant]
     Dosage: 20-45 MG
     Route: 048
     Dates: start: 19961202
  17. COZAAR [Concomitant]
     Indication: HYPERTENSION
     Dosage: 50-100 MG
     Route: 048
     Dates: start: 19961116
  18. DARVOCET-N 100 [Concomitant]
     Indication: PAIN
     Dosage: 100 MG EVERY ONE-TWO HOURS AS NEEDED
     Dates: start: 19961202
  19. LASIX [Concomitant]
     Dosage: 20-60 MG
     Route: 048
     Dates: start: 19990330
  20. LIPITOR [Concomitant]
     Dates: start: 20020925, end: 20030326
  21. MICRO-K [Concomitant]
     Route: 048
     Dates: start: 19990330, end: 20030331
  22. PLAVIX [Concomitant]
     Indication: ANTIPLATELET THERAPY
     Route: 048
     Dates: start: 20010409
  23. PRILOSEC [Concomitant]
     Route: 048
     Dates: start: 19941228
  24. TERAZOL 1 [Concomitant]
     Indication: FUNGAL INFECTION
     Dates: start: 20000101
  25. AVANDIA [Concomitant]
     Route: 048
     Dates: start: 20000606
  26. LANTUS [Concomitant]
     Indication: DIABETES MELLITUS
     Dosage: 60 UNITS AT BEDTIME
     Route: 058
     Dates: start: 20031105
  27. FLEXERIL [Concomitant]
     Indication: MUSCLE RELAXANT THERAPY
     Route: 048
     Dates: start: 20030731
  28. HUMULIN R [Concomitant]
     Indication: DIABETES MELLITUS
     Dosage: AS PER SLIDING SCALE.
     Dates: start: 19961202
  29. CARDIZEM [Concomitant]
     Dates: start: 19990909
  30. AMARYL [Concomitant]
     Dosage: 2-4 MG DAILY
     Dates: start: 20000101
  31. AMITRIPTYLINE [Concomitant]
     Dosage: 10-50 MG EVERY NIGHT
     Route: 048
     Dates: start: 19960212
  32. GLUCOPHAGE [Concomitant]
     Dosage: 600 MG TWO TIMES A DAY, 1000 MG ONCE DAILY, 500 MG THREE TABLETS IN MORNING, 2 AT NIGHT
     Route: 048
     Dates: start: 19960212, end: 20030326
  33. PREMARIN [Concomitant]
     Dosage: VAGINAL CREAM, 1 GM AT BEDTIME
     Dates: start: 20000920
  34. PHENERGAN [Concomitant]
     Indication: NAUSEA
     Route: 048
     Dates: start: 20000425
  35. XANAX [Concomitant]
     Indication: ANXIETY
     Dosage: 0.125-4 MG
     Dates: start: 19960212
  36. XANAX [Concomitant]
     Indication: PANIC DISORDER
     Dosage: 0.125-4 MG
     Dates: start: 19960212
  37. LITHIUM [Concomitant]
  38. BEXTRA [Concomitant]
     Dates: start: 20030408
  39. BAYCOL [Concomitant]
     Route: 048
     Dates: start: 20010409
  40. PREDNISONE [Concomitant]
     Indication: HYPERSENSITIVITY
     Dosage: 30 MG-10 MG, TAPERING DOSE
     Route: 048
     Dates: start: 20000419
  41. PREDNISONE [Concomitant]
     Indication: ARTHRITIS
     Dosage: 30 MG-10 MG, TAPERING DOSE
     Route: 048
     Dates: start: 20000419
  42. PREDNISONE [Concomitant]
     Indication: ASTHMA
     Dosage: 30 MG-10 MG, TAPERING DOSE
     Route: 048
     Dates: start: 20000419
  43. ACTOS [Concomitant]
     Route: 048
     Dates: start: 20001220
  44. GEMFIBROZIL [Concomitant]
     Route: 048
     Dates: start: 19960212
  45. GLUCAGON KIT [Concomitant]
     Dates: start: 19991223
  46. TRILAFON [Concomitant]
     Dosage: 2 MG THREE TABLETS AT BEDTIME
     Route: 048
     Dates: start: 20000203
  47. DOXEPIN HCL [Concomitant]
     Route: 048
     Dates: start: 20000113
  48. WELLBUTRIN [Concomitant]
     Route: 048
     Dates: start: 20000425
  49. TRICOR [Concomitant]
     Indication: LIPIDS INCREASED
     Dates: start: 20051102
  50. DIFLUCAN [Concomitant]
     Dosage: 150 MG AS NEEDED
     Dates: start: 20010409

REACTIONS (11)
  - BLOOD CHOLESTEROL INCREASED [None]
  - DIABETES MELLITUS [None]
  - DIABETES MELLITUS INADEQUATE CONTROL [None]
  - DIABETIC COMA [None]
  - DIABETIC NEUROPATHY [None]
  - DYSLIPIDAEMIA [None]
  - HYPERGLYCAEMIA [None]
  - HYPERLIPIDAEMIA [None]
  - HYPOGLYCAEMIA [None]
  - INSULIN-REQUIRING TYPE 2 DIABETES MELLITUS [None]
  - TYPE 2 DIABETES MELLITUS [None]
